FAERS Safety Report 9461466 (Version 1)
Quarter: 2013Q3

REPORT INFORMATION
  Report Type: Spontaneous
  Country: JP (occurrence: JP)
  Receive Date: 20130816
  Receipt Date: 20130816
  Transmission Date: 20140515
  Serious: Yes (Other)
  Sender: FDA-Public Use
  Company Number: PHHY2013JP087451

PATIENT
  Sex: Male
  Weight: 60 kg

DRUGS (7)
  1. NEORAL [Suspect]
     Indication: DERMATITIS ATOPIC
     Dosage: 2 DF, DAILY
     Route: 048
     Dates: start: 201212, end: 20130131
  2. NEORAL [Suspect]
     Dosage: 300 MG, DAILY
     Route: 048
     Dates: start: 20130420
  3. NEORAL [Suspect]
     Dosage: 200 MG, DAILY
     Dates: start: 20130422, end: 20130512
  4. NEORAL [Suspect]
     Dosage: 150 MG, DAILY
     Route: 048
     Dates: start: 20130526, end: 20130708
  5. NEORAL [Suspect]
     Dosage: 300 MG, DAILY
     Route: 048
     Dates: start: 20130708, end: 20130722
  6. ADRENOCORTICAL HORMONE PREPARATIONS [Concomitant]
  7. TACROLIMUS [Concomitant]

REACTIONS (9)
  - Rebound effect [Unknown]
  - Renal disorder [Unknown]
  - Dermatitis atopic [Unknown]
  - Rash [Unknown]
  - Acne [Unknown]
  - Erythema [Unknown]
  - Pruritus [Unknown]
  - Oedema [Unknown]
  - Diarrhoea [Unknown]
